FAERS Safety Report 5739335-9 (Version None)
Quarter: 2008Q2

REPORT INFORMATION
  Report Type: 
  Country: None (occurrence: None)
  Receive Date: 20080512
  Receipt Date: 20080318
  Transmission Date: 20081010
  Serious: Yes (Other)
  Sender: FDA-Public Use
  Company Number: 46339

PATIENT
  Age: 72 Year
  Sex: Female
  Weight: 58.0604 kg

DRUGS (1)
  1. PAMIDRONATE DISODIUM [Suspect]
     Indication: BONE DENSITY INCREASED
     Dosage: IV ONCE EVERY THREE MONTHS
     Route: 042
     Dates: start: 20010101

REACTIONS (1)
  - OSTEONECROSIS [None]
